FAERS Safety Report 22956076 (Version 3)
Quarter: 2023Q4

REPORT INFORMATION
  Report Type: Report from Study
  Country: CA (occurrence: CA)
  Receive Date: 20230919
  Receipt Date: 20231026
  Transmission Date: 20240110
  Serious: Yes (Hospitalization)
  Sender: FDA-Public Use
  Company Number: CA-ABBVIE-5410324

PATIENT
  Sex: Male

DRUGS (2)
  1. SKYRIZI [Suspect]
     Active Substance: RISANKIZUMAB-RZAA
     Indication: Psoriasis
     Dosage: FORM STRENGTH: 150 MILLIGRAM, LAST ADMIN DATE 2023
     Route: 058
     Dates: start: 20221221
  2. SKYRIZI [Suspect]
     Active Substance: RISANKIZUMAB-RZAA
     Dosage: FIRST ADMIN DATE 2023?FORM STRENGTH: 150 MILLIGRAM
     Route: 058

REACTIONS (5)
  - COVID-19 [Recovered/Resolved]
  - Illness [Recovering/Resolving]
  - Fall [Recovered/Resolved]
  - Disease complication [Unknown]
  - Injury [Recovered/Resolved]

NARRATIVE: CASE EVENT DATE: 20230101
